FAERS Safety Report 21308298 (Version 1)
Quarter: 2022Q3

REPORT INFORMATION
  Report Type: Spontaneous
  Country: JP (occurrence: JP)
  Receive Date: 20220908
  Receipt Date: 20220908
  Transmission Date: 20221027
  Serious: Yes (Death)
  Sender: FDA-Public Use
  Company Number: JP-JNJFOC-20220454638

PATIENT
  Age: 80 Year
  Sex: Female

DRUGS (2)
  1. OPSUMIT [Suspect]
     Active Substance: MACITENTAN
     Indication: Pulmonary arterial hypertension
     Route: 048
     Dates: start: 20220420, end: 20220427
  2. PREDNISOLONE [Concomitant]
     Active Substance: PREDNISOLONE
     Route: 048

REACTIONS (2)
  - Death [Fatal]
  - Platelet count decreased [Fatal]

NARRATIVE: CASE EVENT DATE: 20220425
